FAERS Safety Report 5135919-X (Version None)
Quarter: 2006Q4

REPORT INFORMATION
  Report Type: 
  Country: None (occurrence: None)
  Receive Date: 20061019
  Receipt Date: 20061012
  Transmission Date: 20070319
  Serious: Yes (Life-Threatening)
  Sender: FDA-Public Use
  Company Number: 2006-148995-NL

PATIENT
  Age: 63 Year
  Sex: Female

DRUGS (7)
  1. DANAPAROID SODIUM [Suspect]
     Indication: HEPARIN-INDUCED THROMBOCYTOPENIA
     Dosage: SEE IMAGE
     Route: 040
  2. DANAPAROID SODIUM [Suspect]
     Indication: HEPARIN-INDUCED THROMBOCYTOPENIA
     Dosage: SEE IMAGE
     Route: 040
  3. DANAPAROID SODIUM [Suspect]
     Indication: HEPARIN-INDUCED THROMBOCYTOPENIA
     Dosage: SEE IMAGE
     Route: 040
  4. HEPARIN [Concomitant]
  5. NOREPINEPHRINE BITARTRATE [Concomitant]
  6. OXACILLIN [Concomitant]
  7. AMIODARONE HCL [Concomitant]

REACTIONS (4)
  - CONDITION AGGRAVATED [None]
  - PLATELET COUNT DECREASED [None]
  - PNEUMONIA [None]
  - THROMBOSIS [None]
